FAERS Safety Report 10088042 (Version 1)
Quarter: 2014Q2

REPORT INFORMATION
  Report Type: Spontaneous
  Country: JP (occurrence: JP)
  Receive Date: 20140420
  Receipt Date: 20140420
  Transmission Date: 20141212
  Serious: Yes (Other)
  Sender: FDA-Public Use
  Company Number: JP-ROCHE-1384976

PATIENT
  Sex: Male

DRUGS (3)
  1. XELODA [Suspect]
     Indication: PRODUCT USED FOR UNKNOWN INDICATION
     Route: 048
     Dates: start: 20140213, end: 20140213
  2. AVASTIN [Suspect]
     Indication: PRODUCT USED FOR UNKNOWN INDICATION
     Route: 041
     Dates: start: 20140213, end: 20140213
  3. ELPLAT [Concomitant]
     Route: 041
     Dates: start: 20140213, end: 20140213

REACTIONS (1)
  - Gastrointestinal perforation [Unknown]
